FAERS Safety Report 15083032 (Version 1)
Quarter: 2018Q2

REPORT INFORMATION
  Report Type: Report from Study
  Country: ES (occurrence: ES)
  Receive Date: 20180628
  Receipt Date: 20180628
  Transmission Date: 20180711
  Serious: Yes (Hospitalization)
  Sender: FDA-Public Use
  Company Number: ES-BAYER-2018-121129

PATIENT
  Age: 70 Year
  Sex: Female

DRUGS (8)
  1. AMLODIPINE [Concomitant]
     Active Substance: AMLODIPINE BESYLATE
     Dosage: 5 MG, UNK
     Route: 048
  2. SINTROM [Interacting]
     Active Substance: ACENOCOUMAROL
     Indication: ATRIAL FIBRILLATION
     Dosage: UNK
     Route: 048
  3. ENALAPRIL [Concomitant]
     Active Substance: ENALAPRIL
     Dosage: UNK
     Route: 048
  4. ADIRO 100 MG [Suspect]
     Active Substance: ASPIRIN
     Dosage: UNK
     Route: 048
  5. METFORMIN HYDROCHLORIDE W/VILDAGLIPTIN [Concomitant]
     Active Substance: METFORMIN HYDROCHLORIDE\VILDAGLIPTIN
     Dosage: UNK
     Route: 048
  6. PRAVASTATIN. [Concomitant]
     Active Substance: PRAVASTATIN
     Dosage: UNK
     Route: 048
  7. DIGOXIN [DIGOXIN] [Concomitant]
     Active Substance: DIGOXIN
     Dosage: UNK
     Route: 048
     Dates: start: 20170520, end: 20171213
  8. PANTOPRAZOLE [Concomitant]
     Active Substance: PANTOPRAZOLE
     Dosage: UNK
     Route: 048

REACTIONS (1)
  - Anaemia [Recovered/Resolved]

NARRATIVE: CASE EVENT DATE: 20170918
